FAERS Safety Report 5965357-9 (Version None)
Quarter: 2008Q4

REPORT INFORMATION
  Report Type: 
  Country: None (occurrence: None)
  Receive Date: 20081125
  Receipt Date: 20081119
  Transmission Date: 20090506
  Serious: Yes (Disabling, Other)
  Sender: FDA-Public Use
  Company Number: DE-AVENTIS-200812129DE

PATIENT
  Age: 65 Year
  Sex: Female
  Weight: 41 kg

DRUGS (6)
  1. ARAVA [Suspect]
     Indication: SARCOIDOSIS
     Dosage: DOSE: NOT REPORTED
     Route: 048
     Dates: start: 20060101, end: 20070601
  2. ARAVA [Suspect]
     Dosage: DOSE: 10 AND 20 MG ALTERNATING EVERY DAY
     Route: 048
     Dates: start: 20070701, end: 20080101
  3. ARAVA [Suspect]
     Dosage: DOSE: NOT REPORTED
     Route: 048
     Dates: start: 20080101
  4. PREDNISOLONE [Concomitant]
     Indication: SARCOIDOSIS
     Route: 048
     Dates: start: 20060101
  5. PANTOZOL                           /01263202/ [Concomitant]
     Indication: PROPHYLAXIS
     Route: 048
     Dates: start: 20060101
  6. CALCIUM W/VIT.D3 [Concomitant]
     Indication: DRUG USE FOR UNKNOWN INDICATION
     Dosage: DOSE: NOT REPORTED
     Route: 048

REACTIONS (5)
  - BLISTER [None]
  - ERYTHEMA [None]
  - HEPATITIS [None]
  - STOMATITIS [None]
  - SWELLING [None]
